FAERS Safety Report 9086146 (Version 5)
Quarter: 2013Q3

REPORT INFORMATION
  Report Type: Report from Study
  Country: US (occurrence: US)
  Receive Date: 20130131
  Receipt Date: 20130709
  Transmission Date: 20140515
  Serious: Yes (Hospitalization)
  Sender: FDA-Public Use
  Company Number: US-ABBOTT-12P-163-0997009-00

PATIENT
  Age: 46 Year
  Sex: Female
  Weight: 113.5 kg

DRUGS (13)
  1. HUMIRA [Suspect]
     Indication: PSORIASIS
     Dates: start: 201111
  2. HUMIRA [Suspect]
     Indication: PSORIATIC ARTHROPATHY
  3. HUMIRA [Suspect]
     Indication: PSORIASIS
  4. METHOTREXATE [Suspect]
     Indication: PSORIASIS
  5. METHOTREXATE [Suspect]
     Indication: PSORIATIC ARTHROPATHY
  6. SYNTHROID [Concomitant]
     Indication: HYPOTHYROIDISM
  7. CYMBALTA [Concomitant]
     Indication: DEPRESSION
  8. LASIX [Concomitant]
     Indication: LYMPHOEDEMA
  9. PANTOPRAZOLE [Concomitant]
     Indication: GASTROOESOPHAGEAL REFLUX DISEASE
  10. PANTOPRAZOLE [Concomitant]
     Indication: HIATUS HERNIA
  11. VITAMIN D NOS [Concomitant]
     Indication: VITAMIN SUPPLEMENTATION
  12. FOLIC ACID [Concomitant]
     Indication: VITAMIN SUPPLEMENTATION
  13. OXYCODONE [Concomitant]
     Indication: PAIN

REACTIONS (14)
  - Bone disorder [Recovering/Resolving]
  - Femur fracture [Recovering/Resolving]
  - Arthritis [Recovered/Resolved]
  - Anaemia [Recovered/Resolved]
  - Inflammation [Not Recovered/Not Resolved]
  - Pain in extremity [Not Recovered/Not Resolved]
  - Osteoarthritis [Recovered/Resolved]
  - Lymphoedema [Recovered/Resolved]
  - Pain in extremity [Recovered/Resolved]
  - Back pain [Recovered/Resolved]
  - Dysstasia [Recovered/Resolved]
  - Intervertebral disc protrusion [Recovered/Resolved]
  - Bone disorder [Recovered/Resolved]
  - Lymphoedema [Unknown]
